FAERS Safety Report 9144673 (Version 4)
Quarter: 2013Q1

REPORT INFORMATION
  Report Type: Spontaneous
  Country: BG (occurrence: BG)
  Receive Date: 20130306
  Receipt Date: 20130326
  Transmission Date: 20140127
  Serious: Yes (Death, Life-Threatening, Hospitalization, Disabling)
  Sender: FDA-Public Use
  Company Number: BG-B.I. PHARMACEUTICALS,INC./RIDGEFIELD-2013-AP-00188AP

PATIENT
  Age: 78 Year
  Sex: Male

DRUGS (7)
  1. PRADAXA [Suspect]
     Indication: ATRIAL FIBRILLATION
     Dosage: 220 MG
     Route: 048
     Dates: start: 20121120, end: 20121201
  2. SYNTROM [Concomitant]
     Indication: HEMIPARESIS
     Route: 065
     Dates: start: 20121115, end: 20121122
  3. SYNTROM [Concomitant]
     Indication: HEMIPARESIS
  4. CAVINTON [Concomitant]
     Indication: HEMIPARESIS
     Dosage: 10 MG
     Route: 048
     Dates: start: 20121115, end: 20121122
  5. CAVINTON [Concomitant]
     Indication: HEMIPARESIS
  6. PYRAMEM [Concomitant]
     Indication: HEMIPARESIS
     Dosage: 1600 MG
     Route: 065
     Dates: start: 20121115, end: 20121122
  7. PYRAMEM [Concomitant]
     Indication: HEMIPARESIS

REACTIONS (11)
  - Respiratory failure [Fatal]
  - Cerebral haemorrhage [Fatal]
  - Brain oedema [Fatal]
  - Haemorrhagic stroke [Unknown]
  - Coma [Unknown]
  - Quadriplegia [Unknown]
  - Shock [Unknown]
  - Acute respiratory distress syndrome [Unknown]
  - Cyanosis [Unknown]
  - Arrhythmia [Unknown]
  - Tachycardia [Unknown]
